FAERS Safety Report 14086832 (Version 1)
Quarter: 2017Q4

REPORT INFORMATION
  Report Type: Spontaneous
  Country: IT (occurrence: IT)
  Receive Date: 20171013
  Receipt Date: 20171013
  Transmission Date: 20180321
  Serious: Yes (Other)
  Sender: FDA-Public Use
  Company Number: IT-TEVA-809884ACC

PATIENT
  Age: 11 Month
  Sex: Male
  Weight: 11 kg

DRUGS (3)
  1. IRON [Concomitant]
     Active Substance: IRON
  2. AZITHROMYCIN ANHYDROUS. [Suspect]
     Active Substance: AZITHROMYCIN ANHYDROUS
     Indication: INFECTION
     Route: 048
     Dates: start: 20170907, end: 20170909
  3. CARDIOASPIRINA [Concomitant]
     Active Substance: ASPIRIN

REACTIONS (3)
  - Conjunctival hyperaemia [Recovering/Resolving]
  - Pharyngeal erythema [Recovering/Resolving]
  - Rash [Recovering/Resolving]

NARRATIVE: CASE EVENT DATE: 20170909
